FAERS Safety Report 6738467-6 (Version None)
Quarter: 2010Q2

REPORT INFORMATION
  Report Type: 
  Country: None (occurrence: None)
  Receive Date: 20100524
  Receipt Date: 20100510
  Transmission Date: 20101027
  Serious: Yes (Other)
  Sender: FDA-Public Use
  Company Number: PHHY2009IE49080

PATIENT
  Sex: Female

DRUGS (19)
  1. CLOZARIL [Suspect]
     Indication: SCHIZOPHRENIA
     Dosage: 100 MG AM AND 300 MG PM
     Dates: start: 20020422
  2. CLOZARIL [Suspect]
     Dosage: 100 MG AM AND 200 MG PM
  3. CLOZARIL [Suspect]
     Dosage: 100 MG MORNING, 250 MG NIGHT
     Dates: start: 20100212
  4. ARIPIPRAZOLE [Concomitant]
     Indication: SCHIZOPHRENIA
     Dosage: 30 MG, QD
     Route: 048
     Dates: end: 20100225
  5. ARIPIPRAZOLE [Concomitant]
     Dosage: 30 MG AT NIGHT
     Route: 048
  6. ARIPIPRAZOLE [Concomitant]
     Dosage: 15 MG AT NIGHT
  7. DIAZEPAM [Concomitant]
     Indication: SCHIZOPHRENIA
     Dosage: 1 MG
     Route: 048
  8. DIAZEPAM [Concomitant]
     Dosage: 1 MG, BID
     Route: 048
  9. DIAZEPAM [Concomitant]
     Dosage: 3 MG PER DAY
  10. DIAZEPAM [Concomitant]
     Dosage: 1MG NOCTE, 2MG TARDE
     Route: 048
  11. EPILIM CHRONO [Concomitant]
     Dosage: 1500 MG, UNK
     Route: 048
  12. EPILIM CHRONO [Concomitant]
     Dosage: 1500MG NOCTE, 500MG MANE
     Route: 048
  13. OMACOR [Concomitant]
     Dosage: 2000 MG, BID
     Route: 048
  14. FOLIC ACID [Concomitant]
     Dosage: 5MG MANE
     Route: 048
  15. FOLIC ACID [Concomitant]
     Dosage: 5 MG, QD
     Route: 048
  16. RISPERIDONE [Concomitant]
     Dosage: 1 MG, BID
  17. RISPERIDONE CONSTA [Concomitant]
     Dosage: 25 MG, BIW
     Route: 030
  18. RISPERIDONE CONSTA [Concomitant]
     Dosage: 50 MG, QW2
     Route: 030
  19. LORAZEPAM [Concomitant]
     Dosage: 1 MG, PRN
     Route: 048

REACTIONS (2)
  - HYPERTENSION [None]
  - SINUS TACHYCARDIA [None]
